FAERS Safety Report 8551062 (Version 2)
Quarter: 2012Q4

REPORT INFORMATION
  Report Type: 
  Country: US (occurrence: US)
  Receive Date: 20120508
  Receipt Date: 20120907
  Transmission Date: 20130627
  Serious: Yes (Hospitalization)
  Sender: FDA-Public Use
  Company Number: US-BAYER-US-2006-012307

PATIENT
  Age: 29 Year
  Sex: Female
  Weight: 60.32 kg

DRUGS (6)
  1. YASMIN [Suspect]
     Indication: CONTRACEPTION
     Dosage: UNK
     Dates: start: 20050911, end: 20050916
  2. YASMIN [Suspect]
     Indication: PREMENSTRUAL SYNDROME
  3. YASMIN [Suspect]
     Indication: PREMENSTRUAL SYNDROME
  4. PYRIDIUM [Concomitant]
     Dosage: 200 mg, TID
     Dates: start: 20050907
  5. DOXYCYCLINE [Concomitant]
     Dosage: 100 mg, BID
     Dates: start: 20050908
  6. VICODIN [Concomitant]

REACTIONS (16)
  - Deep vein thrombosis [Recovered/Resolved]
  - Pulmonary embolism [Not Recovered/Not Resolved]
  - Deep vein thrombosis [None]
  - Vomiting [Recovered/Resolved]
  - Injury [None]
  - Pain [None]
  - Pulmonary embolism [None]
  - Deep vein thrombosis [None]
  - Syncope [None]
  - Chest pain [Not Recovered/Not Resolved]
  - Dyspnoea [Not Recovered/Not Resolved]
  - Venous insufficiency [Recovered/Resolved]
  - Back pain [None]
  - Pain in extremity [Recovered/Resolved]
  - Arthralgia [Recovered/Resolved]
  - Dizziness [Not Recovered/Not Resolved]
